FAERS Safety Report 5894185-8 (Version None)
Quarter: 2008Q3

REPORT INFORMATION
  Report Type: 
  Country: None (occurrence: None)
  Receive Date: 20080922
  Receipt Date: 20080910
  Transmission Date: 20090109
  Serious: Yes (Hospitalization, Other)
  Sender: FDA-Public Use
  Company Number: 2008AL004308

PATIENT
  Age: 59 Year
  Sex: Male
  Weight: 120.6568 kg

DRUGS (13)
  1. DIGOXIN [Suspect]
     Indication: CARDIOMEGALY
     Dosage: 0.25MG DAILY PO;  0.125MG, DAILY, PO
     Route: 048
     Dates: start: 20080324, end: 20080417
  2. DIGOXIN [Suspect]
     Indication: CARDIOMEGALY
     Dosage: 0.25MG DAILY PO;  0.125MG, DAILY, PO
     Route: 048
     Dates: start: 20080321
  3. GLYBURIDE [Concomitant]
  4. COREG [Concomitant]
  5. LISINOPRIL [Concomitant]
  6. LASIX [Concomitant]
  7. POTASSIUM CHLORIDE [Concomitant]
  8. ALLOPURINAL AND SPIRONLAC [Concomitant]
  9. MULTI-VITAMIN [Concomitant]
  10. NIASPAN [Concomitant]
  11. ASPIRIN [Concomitant]
  12. TESTOSTERONE [Concomitant]
  13. BUPROPION HCL [Concomitant]

REACTIONS (16)
  - ASTHENIA [None]
  - CONGESTIVE CARDIOMYOPATHY [None]
  - DEHYDRATION [None]
  - DISORIENTATION [None]
  - DYSPEPSIA [None]
  - DYSPNOEA EXERTIONAL [None]
  - FALL [None]
  - HEADACHE [None]
  - LOSS OF CONSCIOUSNESS [None]
  - MALAISE [None]
  - MYOCARDIAL INFARCTION [None]
  - OEDEMA PERIPHERAL [None]
  - RENAL FAILURE [None]
  - RENAL FAILURE ACUTE [None]
  - THERAPEUTIC AGENT TOXICITY [None]
  - VOMITING [None]
